FAERS Safety Report 5033190-0 (Version None)
Quarter: 2006Q2

REPORT INFORMATION
  Report Type: 
  Country: None (occurrence: None)
  Receive Date: 20060620
  Receipt Date: 20060613
  Transmission Date: 20061013
  Serious: Yes (Other)
  Sender: FDA-Public Use
  Company Number: S06-USA-02301-01

PATIENT
  Age: 48 Year
  Sex: Female

DRUGS (5)
  1. CAMPRAL [Suspect]
     Indication: ABSTAINS FROM ALCOHOL
     Dosage: 666 MG TID PO
     Route: 048
     Dates: start: 20060516, end: 20060530
  2. CAMPRAL [Suspect]
     Indication: ABSTAINS FROM ALCOHOL
     Dates: start: 20060321, end: 20060515
  3. WELLBUTRIN SR [Concomitant]
  4. ATIVAN [Concomitant]
  5. LEXAPRO [Concomitant]

REACTIONS (2)
  - CONVERSION DISORDER [None]
  - TARDIVE DYSKINESIA [None]
